FAERS Safety Report 18024724 (Version 1)
Quarter: 2020Q3

REPORT INFORMATION
  Report Type: Spontaneous
  Country: US (occurrence: US)
  Receive Date: 20200714
  Receipt Date: 20200714
  Transmission Date: 20201103
  Serious: Yes (Hospitalization)
  Sender: FDA-Public Use
  Company Number: None

PATIENT
  Age: 71 Year
  Sex: Female
  Weight: 62 kg

DRUGS (1)
  1. METHOTREXATE. [Suspect]
     Active Substance: METHOTREXATE
     Route: 058
     Dates: start: 20191114, end: 20200108

REACTIONS (6)
  - Traumatic lung injury [None]
  - Pulmonary toxicity [None]
  - Dyspnoea [None]
  - Cough [None]
  - Chronic obstructive pulmonary disease [None]
  - Wheezing [None]

NARRATIVE: CASE EVENT DATE: 20200108
